FAERS Safety Report 10485985 (Version 3)
Quarter: 2014Q4

REPORT INFORMATION
  Report Type: Spontaneous
  Country: US (occurrence: None)
  Receive Date: 20140929
  Receipt Date: 20141114
  Transmission Date: 20150528
  Serious: Yes (Hospitalization, Other)
  Sender: FDA-Public Use
  Company Number: 2014VID00044

PATIENT
  Age: 20 Month
  Sex: Male
  Weight: 9.8 kg

DRUGS (18)
  1. CLARITHROMYCIN. [Concomitant]
     Active Substance: CLARITHROMYCIN
  2. BACTRIM [Concomitant]
     Active Substance: SULFAMETHOXAZOLE\TRIMETHOPRIM
  3. POLY-VI-FLOR MULTIVITAMIN WITH FLUORIDE [Concomitant]
  4. IBUPROFEN. [Concomitant]
     Active Substance: IBUPROFEN
  5. MICAFUNGIN [Concomitant]
     Active Substance: MICAFUNGIN
  6. RIFAMPIN. [Concomitant]
     Active Substance: RIFAMPIN
  7. SUCRALFATE. [Concomitant]
     Active Substance: SUCRALFATE
  8. INTRAVENOUS IMMUNOGLOBULIN (IVIG) (IMMUNE GLOBULIN INTRAVENOUS (HUMAN) 10% LIQUID) [Concomitant]
     Active Substance: HUMAN IMMUNOGLOBULIN G
  9. CHOLECALCIFEROL [Concomitant]
     Active Substance: CHOLECALCIFEROL
  10. ACTIMMUNE [Suspect]
     Active Substance: INTERFERON GAMMA-1B
     Indication: COMBINED IMMUNODEFICIENCY
     Route: 058
     Dates: start: 20140729
  11. ACTIMMUNE [Suspect]
     Active Substance: INTERFERON GAMMA-1B
     Indication: VENTRICULAR SEPTAL DEFECT
     Route: 058
     Dates: start: 20140729
  12. LANSOPRAZOLE. [Concomitant]
     Active Substance: LANSOPRAZOLE
  13. ISONIAZID. [Concomitant]
     Active Substance: ISONIAZID
  14. ALBUTEROL. [Concomitant]
     Active Substance: ALBUTEROL
  15. FLUORIDE TOPICAL [Concomitant]
  16. CHLOROTHIAZIDE. [Concomitant]
     Active Substance: CHLOROTHIAZIDE
  17. CHLORHEXIDINE [Concomitant]
     Active Substance: CHLORHEXIDINE
  18. MOXIFLOXACIN [Concomitant]
     Active Substance: MOXIFLOXACIN

REACTIONS (14)
  - Neutropenia [None]
  - Pyrexia [None]
  - Klebsiella infection [None]
  - Diarrhoea [None]
  - Enterobacter infection [None]
  - Fatigue [None]
  - Bacteraemia [None]
  - Device related infection [None]
  - Device related sepsis [None]
  - Mycobacterium kansasii infection [None]
  - Sepsis [None]
  - Abdominal pain [None]
  - Abnormal behaviour [None]
  - Off label use [None]

NARRATIVE: CASE EVENT DATE: 20140731
